FAERS Safety Report 4438844-2 (Version None)
Quarter: 2004Q3

REPORT INFORMATION
  Report Type: 
  Country: None (occurrence: None)
  Receive Date: 20040901
  Receipt Date: 20040722
  Transmission Date: 20050211
  Serious: Yes (Death, Hospitalization)
  Sender: FDA-Public Use
  Company Number: 200412399JP

PATIENT
  Age: 65 Year
  Sex: Female
  Weight: 46.9 kg

DRUGS (10)
  1. ARAVA [Suspect]
     Indication: RHEUMATOID ARTHRITIS
     Route: 048
     Dates: start: 20040513, end: 20040529
  2. PREDONINE [Concomitant]
     Indication: INFLAMMATION
     Route: 048
     Dates: start: 20040610, end: 20040708
  3. MOBIC [Concomitant]
     Route: 048
     Dates: end: 20040708
  4. VOLTAREN [Concomitant]
     Route: 048
     Dates: start: 20040708
  5. 8-HOUR BAYER [Concomitant]
     Route: 048
     Dates: end: 20040708
  6. NORVASK [Concomitant]
     Route: 048
     Dates: end: 20040708
  7. PARIET [Concomitant]
     Route: 048
     Dates: end: 20040708
  8. SELBEX [Concomitant]
     Indication: GASTRITIS
     Route: 048
     Dates: end: 20040708
  9. PAXIL [Concomitant]
     Route: 048
     Dates: end: 20040708
  10. SUVENYL [Concomitant]
     Indication: PROPHYLAXIS
     Dosage: DOSE: 1A FOR EACH OF BOTH GENICULA OR BOTH SHOULDER
     Route: 042
     Dates: start: 20040513

REACTIONS (7)
  - ARTHRALGIA [None]
  - DECREASED APPETITE [None]
  - DIZZINESS [None]
  - DYSPNOEA [None]
  - EOSINOPHILIC PNEUMONIA [None]
  - INTERSTITIAL LUNG DISEASE [None]
  - NAUSEA [None]
